FAERS Safety Report 23804181 (Version 1)
Quarter: 2024Q2

REPORT INFORMATION
  Report Type: Spontaneous
  Country: US (occurrence: US)
  Receive Date: 20240501
  Receipt Date: 20240501
  Transmission Date: 20240715
  Serious: Yes (Other)
  Sender: FDA-Public Use
  Company Number: US-GE HEALTHCARE-2024CSU004276

PATIENT
  Age: 69 Year
  Sex: Male
  Weight: 82.9 kg

DRUGS (1)
  1. OMNIPAQUE [Suspect]
     Active Substance: IOHEXOL
     Indication: Stent placement
     Dosage: 140 ML, TOTAL
     Route: 065
     Dates: start: 20240423, end: 20240423

REACTIONS (2)
  - Brain fog [Recovered/Resolved]
  - Aphasia [Recovered/Resolved]

NARRATIVE: CASE EVENT DATE: 20240423
